FAERS Safety Report 12290374 (Version 1)
Quarter: 2016Q2

REPORT INFORMATION
  Report Type: Spontaneous
  Country: LU (occurrence: LU)
  Receive Date: 20160421
  Receipt Date: 20160421
  Transmission Date: 20160815
  Serious: Yes (Hospitalization)
  Sender: FDA-Public Use
  Company Number: LU-SA-2016SA074764

PATIENT
  Age: 71 Year
  Sex: Male

DRUGS (12)
  1. CELLCEPT [Concomitant]
     Active Substance: MYCOPHENOLATE MOFETIL\MYCOPHENOLATE MOFETIL HYDROCHLORIDE
     Indication: RENAL TRANSPLANT
     Route: 048
  2. CLEXANE [Suspect]
     Active Substance: ENOXAPARIN SODIUM
     Route: 058
     Dates: start: 20160215
  3. TRAMADOL. [Suspect]
     Active Substance: TRAMADOL
     Indication: PAIN
     Route: 048
     Dates: start: 20160218, end: 20160229
  4. VASEXTEN [Suspect]
     Active Substance: BARNIDIPINE
     Indication: HYPERTENSION
     Route: 048
     Dates: start: 20160217, end: 20160229
  5. PARACETAMOL [Suspect]
     Active Substance: ACETAMINOPHEN
     Indication: PAIN
     Route: 065
     Dates: start: 20160219, end: 20160309
  6. LASIX [Suspect]
     Active Substance: FUROSEMIDE
     Route: 065
     Dates: start: 20160216, end: 20160229
  7. NOVALGIN [Suspect]
     Active Substance: METAMIZOLE SODIUM
     Indication: PROCEDURAL PAIN
     Route: 042
  8. NOVALGIN [Suspect]
     Active Substance: METAMIZOLE SODIUM
     Indication: PROCEDURAL PAIN
     Route: 048
     Dates: start: 20160219, end: 20160224
  9. DIPIDOLOR [Suspect]
     Active Substance: PIRITRAMIDE
     Indication: PAIN
     Route: 065
     Dates: start: 20160216, end: 20160223
  10. DEHYDROBENZPERIDOL [Suspect]
     Active Substance: DROPERIDOL
     Indication: NAUSEA
     Route: 042
     Dates: start: 20160216, end: 20160223
  11. ADENURIC [Suspect]
     Active Substance: FEBUXOSTAT
     Indication: HYPERURICAEMIA
     Route: 048
     Dates: start: 20160219
  12. ADVAGRAF [Concomitant]
     Active Substance: TACROLIMUS
     Indication: RENAL TRANSPLANT
     Route: 048

REACTIONS (2)
  - Renal transplant failure [Not Recovered/Not Resolved]
  - Renal impairment [Not Recovered/Not Resolved]

NARRATIVE: CASE EVENT DATE: 20160217
